FAERS Safety Report 4631841-3 (Version None)
Quarter: 2005Q2

REPORT INFORMATION
  Report Type: 
  Country: None (occurrence: None)
  Receive Date: 20050411
  Receipt Date: 20050330
  Transmission Date: 20051028
  Serious: Yes (Death, Hospitalization)
  Sender: FDA-Public Use
  Company Number: JP-JNJFOC-20050200665

PATIENT
  Sex: Male
  Weight: 56.5 kg

DRUGS (11)
  1. REMICADE [Suspect]
     Route: 042
  2. REMICADE [Suspect]
     Route: 042
  3. REMICADE [Suspect]
     Dosage: THIS WAS THE THIRD INFUSION.
     Route: 042
  4. REMICADE [Suspect]
     Indication: RHEUMATOID ARTHRITIS
     Route: 042
  5. METHOTREXATE [Concomitant]
     Route: 049
  6. METHOTREXATE [Concomitant]
     Route: 049
  7. PREDNISOLONE [Concomitant]
     Route: 049
  8. VOLTAREN [Concomitant]
  9. FOLIAMIN [Concomitant]
     Route: 049
  10. CYTOTEC [Concomitant]
     Indication: GASTRIC ULCER
     Route: 049
  11. TAKEPRON [Concomitant]
     Indication: GASTRIC ULCER
     Route: 049

REACTIONS (8)
  - C-REACTIVE PROTEIN INCREASED [None]
  - CEREBRAL HAEMORRHAGE [None]
  - CEREBRAL INFARCTION [None]
  - LUPUS-LIKE SYNDROME [None]
  - MENINGITIS [None]
  - POLYARTERITIS NODOSA [None]
  - PYREXIA [None]
  - TUBERCULOSIS [None]
